FAERS Safety Report 5866524-5 (Version None)
Quarter: 2008Q3

REPORT INFORMATION
  Report Type: 
  Country: None (occurrence: None)
  Receive Date: 20080902
  Receipt Date: 20080902
  Transmission Date: 20090109
  Serious: Yes (Hospitalization)
  Sender: FDA-Public Use
  Company Number: PHEH1996US00056

PATIENT
  Sex: Male

DRUGS (6)
  1. OXYBUTYNIN CHLORIDE [Suspect]
     Dosage: 450 MG, BID
     Route: 048
     Dates: start: 19951114
  2. IMURAN [Concomitant]
  3. PREDNISONE TAB [Concomitant]
     Route: 048
     Dates: end: 19951211
  4. PREDNISONE TAB [Concomitant]
     Route: 048
     Dates: start: 19951212, end: 19951214
  5. PREDNISONE TAB [Concomitant]
     Route: 048
     Dates: start: 19951215, end: 19951216
  6. PREDNISONE TAB [Concomitant]
     Route: 048
     Dates: start: 19951217

REACTIONS (4)
  - HYPOTENSION [None]
  - PYREXIA [None]
  - SEPSIS [None]
  - TACHYCARDIA [None]
